FAERS Safety Report 12798566 (Version 1)
Quarter: 2016Q3

REPORT INFORMATION
  Report Type: Spontaneous
  Country: FR (occurrence: FR)
  Receive Date: 20160930
  Receipt Date: 20160930
  Transmission Date: 20161109
  Serious: Yes (Death, Hospitalization)
  Sender: FDA-Public Use
  Company Number: FR-SUN PHARMACEUTICAL INDUSTRIES LTD-2016R1-124801

PATIENT
  Age: 34 Year
  Sex: Male

DRUGS (8)
  1. DIAZEPAM. [Suspect]
     Active Substance: DIAZEPAM
     Indication: PRODUCT USED FOR UNKNOWN INDICATION
     Dosage: UNK
     Route: 065
     Dates: start: 20120614
  2. VALPROIC ACID. [Suspect]
     Active Substance: VALPROIC ACID
     Indication: PRODUCT USED FOR UNKNOWN INDICATION
     Dosage: UNK
     Route: 065
     Dates: start: 20120614
  3. TROPATEPINE [Suspect]
     Active Substance: TROPATEPINE
     Indication: AGGRESSION
  4. QUETIAPINE. [Suspect]
     Active Substance: QUETIAPINE
     Indication: AGITATION
     Dosage: 600 MG, DAILY
     Route: 065
     Dates: start: 20120605
  5. TROPATEPINE [Suspect]
     Active Substance: TROPATEPINE
     Indication: AGITATION
     Dosage: UNK
     Route: 065
     Dates: start: 20120605
  6. RISPERIDONE. [Concomitant]
     Active Substance: RISPERIDONE
     Indication: BIPOLAR DISORDER
     Route: 065
  7. QUETIAPINE. [Suspect]
     Active Substance: QUETIAPINE
     Indication: AGGRESSION
  8. LOXAPINE SOLUTION [Suspect]
     Active Substance: LOXAPINE
     Indication: PRODUCT USED FOR UNKNOWN INDICATION
     Dosage: UNK
     Route: 065
     Dates: start: 20120614

REACTIONS (11)
  - Acute kidney injury [Fatal]
  - Malaise [Unknown]
  - Metabolic acidosis [Unknown]
  - Gastrointestinal necrosis [None]
  - Cardiac arrest [Fatal]
  - Fungal infection [Fatal]
  - Large intestine perforation [None]
  - Colitis ischaemic [Unknown]
  - Multiple organ dysfunction syndrome [Fatal]
  - Bacterial infection [Fatal]
  - Hepatic enzyme increased [Unknown]

NARRATIVE: CASE EVENT DATE: 20120724
